FAERS Safety Report 12855245 (Version 2)
Quarter: 2016Q4

REPORT INFORMATION
  Report Type: Report from Study
  Country: MX (occurrence: MX)
  Receive Date: 20161017
  Receipt Date: 20161130
  Transmission Date: 20170207
  Serious: Yes (Other)
  Sender: FDA-Public Use
  Company Number: PHHY2016MX138271

PATIENT
  Sex: Male
  Weight: 74 kg

DRUGS (4)
  1. EXFORGE [Suspect]
     Active Substance: AMLODIPINE BESYLATE\VALSARTAN
     Indication: HYPERTENSION
     Dosage: 2 DF  (AMLODIPINE 10 MG, VALSARTAN 320 MG), QD
     Route: 048
     Dates: start: 2006, end: 2014
  2. LOGIMAX [Concomitant]
     Active Substance: FELODIPINE\METOPROLOL SUCCINATE
     Indication: HYPERTENSION
     Dosage: 1 DF, UNK
     Route: 048
     Dates: start: 2006, end: 20161004
  3. EXFORGE HCT [Suspect]
     Active Substance: AMLODIPINE BESYLATE\HYDROCHLOROTHIAZIDE\VALSARTAN
     Indication: HYPERTENSION
     Dosage: 2 DF, QD (AMLODIPINE 10 MG, HYDROCHLOROTHIAZIDE 25 MG, VALSARTAN 320 MG)
     Route: 048
     Dates: start: 2014, end: 201607
  4. EXFORGE [Suspect]
     Active Substance: AMLODIPINE BESYLATE\VALSARTAN
     Dosage: 2 DF (AMLODIPINE 10 MG, VALSARTAN 320 MG), QD
     Route: 048
     Dates: start: 20161007

REACTIONS (7)
  - Renal cyst [Not Recovered/Not Resolved]
  - Drug prescribing error [Recovered/Resolved]
  - Pollakiuria [Unknown]
  - Polyuria [Not Recovered/Not Resolved]
  - Incorrect dose administered [Recovered/Resolved]
  - Diabetes mellitus [Recovering/Resolving]
  - Urine abnormality [Not Recovered/Not Resolved]

NARRATIVE: CASE EVENT DATE: 2006
